FAERS Safety Report 13246306 (Version 2)
Quarter: 2021Q3

REPORT INFORMATION
  Report Type: Spontaneous
  Country: CA (occurrence: CA)
  Receive Date: 20170217
  Receipt Date: 20210814
  Transmission Date: 20211014
  Serious: Yes (Other)
  Sender: FDA-Public Use
  Company Number: CA-TEVA-740776USA

PATIENT
  Age: 3 Year
  Sex: Male

DRUGS (9)
  1. CLONIDINE. [Suspect]
     Active Substance: CLONIDINE
     Dosage: EVERY BED TIME
     Route: 048
  2. METRONIDAZOLE. [Concomitant]
     Active Substance: METRONIDAZOLE
     Route: 048
  3. SYNTHROID [Suspect]
     Active Substance: LEVOTHYROXINE SODIUM
     Dosage: 0.025MG DAILY
     Route: 048
  4. MORPHINE [Concomitant]
     Active Substance: MORPHINE
     Route: 048
  5. DDAVP [Suspect]
     Active Substance: DESMOPRESSIN ACETATE
     Dosage: PLUS 0.05MG QHS
     Route: 048
  6. CORTEF [Suspect]
     Active Substance: HYDROCORTISONE
     Route: 048
  7. CLOBAZAM. [Suspect]
     Active Substance: CLOBAZAM
     Dosage: 5MG DAILY
     Route: 048
  8. DDAVP [Suspect]
     Active Substance: DESMOPRESSIN ACETATE
     Dosage: EVERY BED TIME
     Route: 048
  9. OMEPRAZOLE. [Concomitant]
     Active Substance: OMEPRAZOLE
     Route: 048

REACTIONS (1)
  - Gastrointestinal disorder [Recovering/Resolving]
